FAERS Safety Report 4918434-5 (Version None)
Quarter: 2006Q1

REPORT INFORMATION
  Report Type: 
  Country: None (occurrence: None)
  Receive Date: 20060222
  Receipt Date: 20060210
  Transmission Date: 20060701
  Serious: Yes (Death)
  Sender: FDA-Public Use
  Company Number: CH-AMGEN-UK168445

PATIENT
  Sex: Male
  Weight: 62 kg

DRUGS (1)
  1. PALIFERMIN [Suspect]
     Indication: PERIPHERAL BLOOD STEM CELL APHERESIS
     Route: 042
     Dates: start: 20050924, end: 20051002

REACTIONS (7)
  - ADENOCARCINOMA [None]
  - ASCITES [None]
  - CONSTIPATION [None]
  - DISEASE PROGRESSION [None]
  - METASTASES TO LUNG [None]
  - PERITONEAL CARCINOMA [None]
  - WEIGHT DECREASED [None]
